FAERS Safety Report 6645382-5 (Version None)
Quarter: 2010Q1

REPORT INFORMATION
  Report Type: 
  Country: None (occurrence: None)
  Receive Date: 20100322
  Receipt Date: 20100317
  Transmission Date: 20100710
  Serious: Yes (Life-Threatening)
  Sender: FDA-Public Use
  Company Number: FR-MERCK-1003FRA00051

PATIENT
  Age: 25 Year
  Sex: Female

DRUGS (16)
  1. ISENTRESS [Suspect]
     Indication: HIV INFECTION
     Route: 048
     Dates: start: 20100208, end: 20100218
  2. EMTRICITABINE AND TENOFOVIR DISOPROXIL FUMARATE [Concomitant]
     Indication: HIV INFECTION
     Route: 048
     Dates: start: 20100105
  3. VALGANCICLOVIR HYDROCHLORIDE [Concomitant]
     Route: 048
     Dates: start: 20091222
  4. ATOVAQUONE [Concomitant]
     Route: 048
     Dates: start: 20091222
  5. CIPROFLOXACIN HYDROCHLORIDE [Concomitant]
     Route: 048
     Dates: start: 20100209, end: 20100215
  6. GEMCITABINE [Concomitant]
     Route: 065
     Dates: start: 20100216, end: 20100218
  7. NEFOPAM HYDROCHLORIDE [Concomitant]
     Route: 048
     Dates: start: 20100201
  8. MORPHINE [Concomitant]
     Route: 065
  9. ACETAMINOPHEN [Concomitant]
     Route: 048
     Dates: start: 20091229, end: 20100205
  10. ACETYLCYSTEINE [Concomitant]
     Route: 065
     Dates: start: 20100205
  11. ESOMEPRAZOLE MAGNESIUM [Concomitant]
     Route: 048
     Dates: start: 20100128
  12. METOCLOPRAMIDE HYDROCHLORIDE [Concomitant]
     Route: 048
     Dates: start: 20091223, end: 20100205
  13. POTASSIUM CHLORIDE [Concomitant]
     Route: 048
     Dates: start: 20100206
  14. PHYTONADIONE [Concomitant]
     Route: 065
     Dates: start: 20100201, end: 20100203
  15. HYDROXYZINE HYDROCHLORIDE [Concomitant]
     Route: 048
     Dates: start: 20091231, end: 20100205
  16. ZOPICLONE [Concomitant]
     Route: 048
     Dates: start: 20100106, end: 20100201

REACTIONS (1)
  - PANCREATITIS ACUTE [None]
